FAERS Safety Report 14206021 (Version 3)
Quarter: 2017Q4

REPORT INFORMATION
  Report Type: Report from Study
  Country: IT (occurrence: IT)
  Receive Date: 20171120
  Receipt Date: 20171207
  Transmission Date: 20180321
  Serious: Yes (Hospitalization)
  Sender: FDA-Public Use
  Company Number: IT-CELGENEUS-ITA-20171104003

PATIENT
  Age: 12 Year
  Sex: Male
  Weight: 50.3 kg

DRUGS (21)
  1. ABRAXANE [Suspect]
     Active Substance: PACLITAXEL
     Indication: NEOPLASM
     Dosage: 240 MILLIGRAM/SQ. METER
     Route: 041
     Dates: start: 20170929, end: 20171013
  2. ONDANSETRON [Concomitant]
     Active Substance: ONDANSETRON
     Indication: PROPHYLAXIS OF NAUSEA AND VOMITING
     Dosage: 8 MILLIGRAM
     Route: 041
     Dates: start: 20170929, end: 20170930
  3. RANITIDINE. [Concomitant]
     Active Substance: RANITIDINE
     Dosage: 200 MILLIGRAM
     Route: 041
     Dates: start: 20171006, end: 20171008
  4. GABAPENTIN. [Concomitant]
     Active Substance: GABAPENTIN
     Dosage: 300 MILLIGRAM
     Route: 048
     Dates: start: 20171103, end: 20171110
  5. GABAPENTIN. [Concomitant]
     Active Substance: GABAPENTIN
     Dosage: 200 MG - 100 MG - 200MG
     Route: 048
     Dates: start: 20171111
  6. RANITIDINE. [Concomitant]
     Active Substance: RANITIDINE
     Indication: GASTRITIS PROPHYLAXIS
     Dosage: 200 MILLIGRAM
     Route: 041
     Dates: start: 20170928, end: 20170930
  7. PARACETAMOL [Concomitant]
     Active Substance: ACETAMINOPHEN
     Indication: NEURALGIA
     Dosage: 3000 MILLIGRAM
     Route: 048
     Dates: start: 20171103
  8. GABAPENTIN. [Concomitant]
     Active Substance: GABAPENTIN
     Indication: NEURALGIA
     Dosage: 600 MILLIGRAM
     Route: 048
  9. ONDANSETRON [Concomitant]
     Active Substance: ONDANSETRON
     Dosage: 8 MILLIGRAM
     Route: 041
     Dates: start: 20171013, end: 20171013
  10. BETAMETASONE [Concomitant]
     Active Substance: BETAMETHASONE
     Indication: PERIPHERAL SENSORY NEUROPATHY
     Dosage: 4 MILLIGRAM
     Route: 048
     Dates: start: 20171110
  11. BACTRIM [Concomitant]
     Active Substance: SULFAMETHOXAZOLE\TRIMETHOPRIM
     Indication: PROPHYLAXIS
     Dosage: 160/800 MG
     Route: 048
     Dates: start: 20171001
  12. EUTIROX [Concomitant]
     Active Substance: LEVOTHYROXINE SODIUM
     Indication: HYPOTHYROIDISM
     Dosage: 25 MICROGRAM
     Route: 065
  13. EUTIROX [Concomitant]
     Active Substance: LEVOTHYROXINE SODIUM
     Dosage: 50 MICROGRAM
     Route: 048
     Dates: start: 201609
  14. ONDANSETRON [Concomitant]
     Active Substance: ONDANSETRON
     Dosage: 8 MILLIGRAM
     Route: 041
     Dates: start: 20171007, end: 20171008
  15. PARACETAMOL [Concomitant]
     Active Substance: ACETAMINOPHEN
     Indication: STOMATITIS
     Dosage: 2000 MILLIGRAM
     Route: 048
     Dates: start: 20171016, end: 20171022
  16. RANITIDINE. [Concomitant]
     Active Substance: RANITIDINE
     Dosage: 50 MILLIGRAM
     Route: 041
     Dates: start: 20171013, end: 20171013
  17. XANTERGEL [Concomitant]
     Indication: ULCERATIVE KERATITIS
     Dosage: 6 DROPS
     Route: 047
     Dates: start: 20171122
  18. MAG [Concomitant]
     Indication: HYPOMAGNESAEMIA
     Dosage: 1500 MILLIGRAM
     Route: 048
     Dates: start: 201404
  19. EUTIROX [Concomitant]
     Active Substance: LEVOTHYROXINE SODIUM
     Dosage: 50 MICROGRAM
     Route: 065
  20. GABAPENTIN. [Concomitant]
     Active Substance: GABAPENTIN
     Dosage: 200 MILLIGRAM
     Route: 048
  21. ABRAXANE [Suspect]
     Active Substance: PACLITAXEL
     Dosage: 210 MILLIGRAM/SQ. METER
     Route: 041
     Dates: start: 20171030, end: 20171106

REACTIONS (5)
  - Rash erythematous [Recovered/Resolved]
  - Exfoliative rash [Recovered/Resolved]
  - Dizziness [Recovered/Resolved]
  - Tremor [Recovered/Resolved]
  - Dyspnoea [Recovered/Resolved]

NARRATIVE: CASE EVENT DATE: 20171108
